FAERS Safety Report 7416094-5 (Version None)
Quarter: 2011Q2

REPORT INFORMATION
  Report Type: 
  Country: None (occurrence: None)
  Receive Date: 20110414
  Receipt Date: 20110401
  Transmission Date: 20111010
  Serious: No
  Sender: FDA-Public Use
  Company Number: US-ELI_LILLY_AND_COMPANY-US201102000600

PATIENT
  Sex: Female

DRUGS (4)
  1. ZYPREXA [Suspect]
     Dosage: UNK, UNKNOWN
  2. ZYPREXA [Suspect]
     Indication: DEPRESSION
     Dosage: 2.5 MG, QD
     Route: 048
  3. ZYPREXA [Suspect]
     Dosage: 2.5 MG, BID
     Route: 048
  4. LEXAPRO [Concomitant]
     Dosage: 10 MG, UNK

REACTIONS (2)
  - ARTHRITIS [None]
  - OFF LABEL USE [None]
